FAERS Safety Report 13860191 (Version 7)
Quarter: 2024Q4

REPORT INFORMATION
  Report Type: Spontaneous
  Country: JP (occurrence: JP)
  Receive Date: 20170811
  Receipt Date: 20241225
  Transmission Date: 20250114
  Serious: Yes (Hospitalization)
  Sender: MERCK
  Company Number: JP-MSD-M2017-17647

PATIENT
  Age: 83 Year
  Sex: Female
  Weight: 141 kg

DRUGS (2)
  1. KEYTRUDA [Suspect]
     Active Substance: PEMBROLIZUMAB
     Indication: Squamous cell carcinoma of lung
     Dosage: 200 MG, Q3W
     Route: 041
     Dates: start: 20170606, end: 20170606
  2. DECADRON [Concomitant]
     Active Substance: DEXAMETHASONE
     Indication: Squamous cell carcinoma
     Dosage: 0.5 MG, QD
     Route: 048
     Dates: start: 201705, end: 20170703

REACTIONS (2)
  - Oral mucosal eruption [Recovered/Resolved]
  - Rash erythematous [Recovered/Resolved]

NARRATIVE: CASE EVENT DATE: 20170619
